FAERS Safety Report 20727913 (Version 2)
Quarter: 2022Q2

REPORT INFORMATION
  Report Type: Spontaneous
  Country: CN (occurrence: CN)
  Receive Date: 20220419
  Receipt Date: 20220421
  Transmission Date: 20220720
  Serious: Yes (Other)
  Sender: FDA-Public Use
  Company Number: CN-JNJFOC-20220431843

PATIENT

DRUGS (1)
  1. IBUPROFEN [Suspect]
     Active Substance: IBUPROFEN
     Indication: Patent ductus arteriosus
     Dosage: INITIAL TREATMENT - 10MG/KG, AND 5MG/KG  AFTER 24H AND 48H?IF FAILED IN INITIAL TREATMENT - 20MG/KG,
     Route: 048

REACTIONS (11)
  - Necrotising colitis [Unknown]
  - Intraventricular haemorrhage neonatal [Unknown]
  - Product use in unapproved indication [Unknown]
  - Off label use [Unknown]
  - Upper gastrointestinal haemorrhage [Unknown]
  - Oliguria [Unknown]
  - Cystatin C increased [Unknown]
  - Adverse event [Unknown]
  - Blood bilirubin increased [Unknown]
  - Therapeutic response unexpected [Unknown]
  - Occult blood positive [Unknown]
